FAERS Safety Report 14280510 (Version 1)
Quarter: 2017Q4

REPORT INFORMATION
  Report Type: Spontaneous
  Country: US (occurrence: None)
  Receive Date: 20171212
  Receipt Date: 20171212
  Transmission Date: 20180321
  Serious: Yes (Other)
  Sender: FDA-Public Use
  Company Number: None

PATIENT
  Age: 76 Year
  Sex: Male
  Weight: 83.91 kg

DRUGS (12)
  1. DOXAZOSIN [Concomitant]
     Active Substance: DOXAZOSIN\DOXAZOSIN MESYLATE
  2. FLUTICASONE IN!HNALATION [Concomitant]
  3. DILTIAZEM. [Concomitant]
     Active Substance: DILTIAZEM
  4. LOSARTAN. [Concomitant]
     Active Substance: LOSARTAN
  5. LORAZEPAM. [Concomitant]
     Active Substance: LORAZEPAM
  6. FUROSEMIDE. [Suspect]
     Active Substance: FUROSEMIDE
     Indication: OEDEMA PERIPHERAL
     Dosage: 1/2 TABLET DAILY ORALLY
     Route: 048
     Dates: start: 20171006, end: 20171129
  7. ESOMEPRAZOLE [Concomitant]
     Active Substance: ESOMEPRAZOLE
  8. FLECAINIDE [Concomitant]
     Active Substance: FLECAINIDE
  9. FLUTICASONE NASAL [Concomitant]
     Active Substance: FLUTICASONE
  10. VIAGRA [Concomitant]
     Active Substance: SILDENAFIL CITRATE
  11. ATORVASTATIN [Concomitant]
     Active Substance: ATORVASTATIN
  12. IPRATROPIUM [Concomitant]
     Active Substance: IPRATROPIUM

REACTIONS (1)
  - Erectile dysfunction [None]

NARRATIVE: CASE EVENT DATE: 20171020
